FAERS Safety Report 13618681 (Version 2)
Quarter: 2017Q3

REPORT INFORMATION
  Report Type: Spontaneous
  Country: US (occurrence: US)
  Receive Date: 20170606
  Receipt Date: 20170807
  Transmission Date: 20171127
  Serious: No
  Sender: FDA-Public Use
  Company Number: US-009507513-1705USA010527

PATIENT
  Age: 33 Year
  Sex: Female
  Weight: 92.06 kg

DRUGS (3)
  1. NEXPLANON [Suspect]
     Active Substance: ETONOGESTREL
     Indication: PRODUCT USED FOR UNKNOWN INDICATION
     Dosage: UNK
     Route: 059
     Dates: start: 20141008
  2. NEXPLANON [Suspect]
     Active Substance: ETONOGESTREL
     Dosage: UNK
     Route: 059
     Dates: start: 20170606
  3. NEXPLANON [Suspect]
     Active Substance: ETONOGESTREL
     Dosage: 1 ROD EVERY 3 YEARS
     Route: 059
     Dates: start: 20170510, end: 20170511

REACTIONS (5)
  - Implant site scar [Unknown]
  - No adverse event [Unknown]
  - Device expulsion [Recovered/Resolved]
  - Wound [Unknown]
  - Implant site bruising [Unknown]

NARRATIVE: CASE EVENT DATE: 20170511
